FAERS Safety Report 9310583 (Version 1)
Quarter: 2013Q2

REPORT INFORMATION
  Report Type: Spontaneous
  Country: US (occurrence: US)
  Receive Date: 20130527
  Receipt Date: 20130527
  Transmission Date: 20140414
  Serious: No
  Sender: FDA-Public Use
  Company Number: US-PFIZER INC-2013160524

PATIENT
  Age: 76 Year
  Sex: Female
  Weight: 59 kg

DRUGS (3)
  1. LEVOXYL [Suspect]
     Indication: HYPOTHYROIDISM
     Dosage: 75 UG, 1X/DAY
     Dates: start: 1978
  2. LEVOXYL [Suspect]
     Dosage: 100 UG, 1X/DAY
  3. LEVOXYL [Suspect]
     Dosage: 150 UG, 1X/DAY

REACTIONS (1)
  - Drug ineffective [Unknown]
